FAERS Safety Report 5502898-2 (Version None)
Quarter: 2007Q4

REPORT INFORMATION
  Report Type: 
  Country: None (occurrence: None)
  Receive Date: 20071029
  Receipt Date: 20071029
  Transmission Date: 20080405
  Serious: Yes (Other)
  Sender: FDA-Public Use
  Company Number: None

PATIENT
  Age: 47 Year
  Sex: Male
  Weight: 95.2554 kg

DRUGS (1)
  1. LIPITOR [Suspect]
     Indication: BLOOD CHOLESTEROL INCREASED
     Dates: start: 20060129, end: 20070829

REACTIONS (4)
  - ASTHENIA [None]
  - DISTURBANCE IN ATTENTION [None]
  - LOSS OF LIBIDO [None]
  - PAIN IN EXTREMITY [None]
